FAERS Safety Report 8534613-2 (Version None)
Quarter: 2012Q3

REPORT INFORMATION
  Report Type: 
  Country: None (occurrence: None)
  Receive Date: 20120724
  Receipt Date: 20120710
  Transmission Date: 20120928
  Serious: No
  Sender: FDA-Public Use
  Company Number: US-ASTRAZENECA-2012SE47947

PATIENT
  Sex: Male

DRUGS (6)
  1. SEROQUEL [Suspect]
     Route: 048
  2. MORPHINE SULFATE [Concomitant]
     Route: 048
  3. CHOLESTEROL MEDS [Concomitant]
  4. SEROQUEL [Suspect]
     Indication: DEPRESSION
     Route: 048
  5. CLONOZAPAM [Concomitant]
     Route: 048
  6. PAIN MEDS [Concomitant]

REACTIONS (8)
  - DEPRESSION [None]
  - THERAPEUTIC RESPONSE UNEXPECTED [None]
  - BLOOD CHOLESTEROL INCREASED [None]
  - MUSCULOSKELETAL STIFFNESS [None]
  - WEIGHT INCREASED [None]
  - DRUG INEFFECTIVE [None]
  - DIABETES MELLITUS [None]
  - BACK DISORDER [None]
